FAERS Safety Report 14531852 (Version 1)
Quarter: 2018Q1

REPORT INFORMATION
  Report Type: Spontaneous
  Country: ES (occurrence: ES)
  Receive Date: 20180214
  Receipt Date: 20180214
  Transmission Date: 20180509
  Serious: Yes (Hospitalization)
  Sender: FDA-Public Use
  Company Number: ES-MYLANLABS-2018M1009548

PATIENT
  Age: 65 Year
  Sex: Male

DRUGS (1)
  1. GANCICLOVIR MYLAN [Suspect]
     Active Substance: GANCICLOVIR
     Indication: CYTOMEGALOVIRUS INFECTION
     Dosage: UNK
     Route: 042

REACTIONS (2)
  - Cytopenia [Unknown]
  - Drug ineffective [Unknown]
